FAERS Safety Report 14692998 (Version 1)
Quarter: 2018Q1

REPORT INFORMATION
  Report Type: Spontaneous
  Country: FR (occurrence: FR)
  Receive Date: 20180329
  Receipt Date: 20180329
  Transmission Date: 20180509
  Serious: Yes (Other)
  Sender: FDA-Public Use
  Company Number: FR-MERCK KGAA-2044754

PATIENT
  Age: 31 Year
  Sex: Female
  Weight: 62 kg

DRUGS (1)
  1. NOVOTHYROX [Suspect]
     Active Substance: LEVOTHYROXINE SODIUM
     Indication: THYROID HORMONE REPLACEMENT THERAPY

REACTIONS (47)
  - Depression [None]
  - Asthenia [None]
  - Somnolence [None]
  - Cortisol increased [None]
  - Sleep disorder [None]
  - Migraine [None]
  - Mental fatigue [None]
  - Arthralgia [None]
  - Paraesthesia [None]
  - Low density lipoprotein decreased [None]
  - Neurosis [None]
  - Mood swings [None]
  - Pain in extremity [None]
  - Aggression [None]
  - Memory impairment [None]
  - Blood cholesterol increased [None]
  - Tremor [None]
  - Alopecia [None]
  - Eczema [None]
  - Impatience [None]
  - Pain [None]
  - Libido decreased [None]
  - Neck pain [None]
  - Flatulence [None]
  - Hyperacusis [None]
  - Insomnia [None]
  - Diarrhoea [None]
  - Pruritus [None]
  - Cutaneous lupus erythematosus [None]
  - Disturbance in attention [None]
  - Migraine [None]
  - Myalgia [None]
  - Abdominal pain [None]
  - Immunoglobulins decreased [None]
  - Epicondylitis [None]
  - Nervousness [None]
  - Initial insomnia [None]
  - Affective disorder [None]
  - Blood thyroid stimulating hormone abnormal [None]
  - White blood cells urine positive [None]
  - Poor quality sleep [None]
  - Memory impairment [None]
  - Asthenia [None]
  - Loss of personal independence in daily activities [None]
  - Constipation [None]
  - Blood thyroid stimulating hormone increased [None]
  - Blood thyroid stimulating hormone decreased [None]

NARRATIVE: CASE EVENT DATE: 20170401
